FAERS Safety Report 8073443-5 (Version None)
Quarter: 2012Q1

REPORT INFORMATION
  Report Type: 
  Country: None (occurrence: None)
  Receive Date: 20120126
  Receipt Date: 20120116
  Transmission Date: 20120608
  Serious: Yes (Disabling)
  Sender: FDA-Public Use
  Company Number: US-PERRIGO-12US000371

PATIENT
  Sex: Female
  Weight: 60.317 kg

DRUGS (2)
  1. UNSPECIFIED PRESCRIBED MEDICATIONS [Concomitant]
     Indication: PRODUCT USED FOR UNKNOWN INDICATION
     Dosage: UNK
     Route: 065
  2. MINOXIDIL [Suspect]
     Indication: ALOPECIA
     Dosage: 1 ML, SINGLE
     Route: 061
     Dates: start: 20111212, end: 20111212

REACTIONS (11)
  - HYPERSENSITIVITY [None]
  - SWELLING [None]
  - WEIGHT DECREASED [None]
  - SKIN LESION [None]
  - CHILLS [None]
  - NAUSEA [None]
  - FATIGUE [None]
  - DRY SKIN [None]
  - URTICARIA [None]
  - MUSCULOSKELETAL PAIN [None]
  - DECREASED APPETITE [None]
